FAERS Safety Report 6295545-6 (Version None)
Quarter: 2009Q3

REPORT INFORMATION
  Report Type: 
  Country: None (occurrence: None)
  Receive Date: 20090731
  Receipt Date: 20090724
  Transmission Date: 20100115
  Serious: Yes (Other)
  Sender: FDA-Public Use
  Company Number: 09-001145

PATIENT
  Age: 38 Year
  Sex: Female
  Weight: 102.5 kg

DRUGS (2)
  1. LOESTRIN 24 FE [Suspect]
     Indication: CONTRACEPTION
     Dosage: 20/1000UG, QD, ORAL
     Route: 048
     Dates: start: 20081101, end: 20090201
  2. METFORMIN HCL [Concomitant]

REACTIONS (7)
  - ABORTION SPONTANEOUS [None]
  - AMENORRHOEA [None]
  - BLOOD HUMAN CHORIONIC GONADOTROPIN DECREASED [None]
  - BREAST TENDERNESS [None]
  - DRUG EXPOSURE DURING PREGNANCY [None]
  - DRUG INEFFECTIVE [None]
  - PREGNANCY ON CONTRACEPTIVE [None]
